FAERS Safety Report 23478542 (Version 1)
Quarter: 2024Q1

REPORT INFORMATION
  Report Type: Spontaneous
  Country: SK (occurrence: SK)
  Receive Date: 20240205
  Receipt Date: 20240205
  Transmission Date: 20240410
  Serious: No
  Sender: FDA-Public Use
  Company Number: SK-IPSEN Group, Research and Development-2023-25910

PATIENT
  Sex: Female

DRUGS (1)
  1. CABOMETYX [Suspect]
     Active Substance: CABOZANTINIB S-MALATE
     Indication: Product used for unknown indication
     Dosage: 60 MG
     Route: 065

REACTIONS (3)
  - Pyrexia [Unknown]
  - Inflammatory marker increased [Unknown]
  - Diarrhoea [Unknown]
